FAERS Safety Report 7423540-X (Version None)
Quarter: 2011Q2

REPORT INFORMATION
  Report Type: 
  Country: None (occurrence: None)
  Receive Date: 20110411
  Receipt Date: 20110325
  Transmission Date: 20111010
  Serious: Yes (Hospitalization)
  Sender: FDA-Public Use
  Company Number: 029465

PATIENT
  Sex: Male

DRUGS (11)
  1. PREDONINE /00016201/ (PREDONINE) [Suspect]
     Indication: RHEUMATOID ARTHRITIS
     Dosage: (5 MG ORAL)
     Route: 048
     Dates: start: 20080912
  2. SELTOUCH (SELTOUCH) [Suspect]
     Indication: RHEUMATOID ARTHRITIS
     Dosage: (ADEQUATE DOSE TRANSDERMAL)
     Route: 062
     Dates: start: 20100105
  3. CERTOLIZUMAB PEGOL (CERTOLIZUMAB PEGOL) [Suspect]
     Indication: RHEUMATOID ARTHRITIS
     Dosage: (200 MG 1X/2 WEEKS, RA0006 SUBCUTANEOUS), (400 MF 1X/2 WEEKS, RA0006 SUBCUTANEOUS), (200 MG 1X/2 WEE
     Route: 058
     Dates: start: 20090326
  4. CERTOLIZUMAB PEGOL (CERTOLIZUMAB PEGOL) [Suspect]
     Indication: RHEUMATOID ARTHRITIS
     Dosage: (200 MG 1X/2 WEEKS, RA0006 SUBCUTANEOUS), (400 MF 1X/2 WEEKS, RA0006 SUBCUTANEOUS), (200 MG 1X/2 WEE
     Route: 058
     Dates: start: 20090716
  5. HYPEN (HYPEN) [Suspect]
     Indication: RHEUMATOID ARTHRITIS
     Dosage: (400 MG ORAL)
     Route: 048
     Dates: start: 20080921
  6. TIGASON /02207501/ (TIGASON) (NOT SPECIFIED) [Suspect]
     Indication: PSORIASIS
     Dosage: (10 MG ORAL)
     Route: 048
     Dates: start: 20010508
  7. PRANOPROFEN (PRANOPROFEN) [Suspect]
     Indication: CATARACT
     Dosage: (4 GTT OPTHALMIC)
     Route: 047
  8. ENALAPRIL MALEATE [Suspect]
     Indication: HYPERTENSION
     Dosage: (10 MG ORAL)
     Route: 048
     Dates: start: 20001205
  9. MUCOSTA (MUCOSTA TABLETS) [Suspect]
     Indication: GASTRITIS
     Dosage: (200 MG ORAL)
     Route: 048
     Dates: start: 20081009
  10. AMLODIN (AMLODIN) [Suspect]
     Indication: HYPERTENSION
     Dosage: (5 MG ORAL)
     Route: 048
     Dates: start: 20001205
  11. MEVALOTIN (MEVALOTIN) (NOT SPECIFIED) [Suspect]
     Indication: HYPERLIPIDAEMIA
     Dosage: (20 MG ORAL)
     Route: 048
     Dates: start: 20001205

REACTIONS (1)
  - COLONIC POLYP [None]
